FAERS Safety Report 17189155 (Version 1)
Quarter: 2019Q4

REPORT INFORMATION
  Report Type: Spontaneous
  Country: DE (occurrence: DE)
  Receive Date: 20191223
  Receipt Date: 20191223
  Transmission Date: 20200122
  Serious: Yes (Life-Threatening, Hospitalization, Other)
  Sender: FDA-Public Use
  Company Number: DE-SA-2019SA353577

PATIENT
  Age: 72 Year
  Sex: Male

DRUGS (1)
  1. DUPIXENT [Suspect]
     Active Substance: DUPILUMAB
     Dosage: 300 MG, QOW
     Dates: start: 20190121

REACTIONS (1)
  - Cerebrovascular accident [Not Recovered/Not Resolved]

NARRATIVE: CASE EVENT DATE: 20191206
